FAERS Safety Report 4890910-3 (Version None)
Quarter: 2006Q1

REPORT INFORMATION
  Report Type: 
  Country: None (occurrence: None)
  Receive Date: 20060123
  Receipt Date: 20060117
  Transmission Date: 20060701
  Serious: Yes (Other)
  Sender: FDA-Public Use
  Company Number: 006453

PATIENT
  Sex: Female

DRUGS (8)
  1. MEDROXYPROGESTERONE ACETATE [Suspect]
     Dosage: SEE IMAGE
     Route: 048
     Dates: start: 19971016, end: 19980614
  2. MEDROXYPROGESTERONE ACETATE [Suspect]
     Dosage: SEE IMAGE
     Route: 048
     Dates: start: 19981103, end: 20010530
  3. PROVERA [Suspect]
     Dosage: SEE IMAGE
     Route: 048
     Dates: start: 19971016, end: 19980614
  4. PROVERA [Suspect]
     Dosage: SEE IMAGE
     Route: 048
     Dates: start: 19981103, end: 20010530
  5. PREMPHASE (MEDROXYPROGESTERONE ACETATE, ESTROGENS CONJUGATE) [Suspect]
     Dosage: ORAL
     Route: 048
     Dates: start: 19960224, end: 19971015
  6. PREMARIN [Suspect]
     Dosage: SEE IMAGE
     Route: 048
     Dates: start: 19971016, end: 19980614
  7. PREMARIN [Suspect]
     Dosage: SEE IMAGE
     Route: 048
     Dates: start: 19981103, end: 20010530
  8. PREMPRO [Suspect]
     Dosage: ORAL
     Route: 048
     Dates: start: 19980615, end: 19981102

REACTIONS (1)
  - BREAST CANCER FEMALE [None]
